FAERS Safety Report 6122355-2 (Version None)
Quarter: 2009Q1

REPORT INFORMATION
  Report Type: 
  Country: None (occurrence: None)
  Receive Date: 20090316
  Receipt Date: 20090316
  Transmission Date: 20090719
  Serious: Yes (Other)
  Sender: FDA-Public Use
  Company Number: None

PATIENT
  Sex: Female
  Weight: 61.8 kg

DRUGS (1)
  1. SORAFENIB [Suspect]
     Indication: LUNG CANCER METASTATIC
     Dosage: 400MG BID PO
     Dates: start: 20081029, end: 20090310

REACTIONS (3)
  - BLOOD AMYLASE ABNORMAL [None]
  - LIPASE ABNORMAL [None]
  - SPINAL DISORDER [None]
